FAERS Safety Report 5295759-8 (Version None)
Quarter: 2007Q2

REPORT INFORMATION
  Report Type: 
  Country: None (occurrence: None)
  Receive Date: 20070406
  Receipt Date: 20070403
  Transmission Date: 20071010
  Serious: No
  Sender: FDA-Public Use
  Company Number: TAP2007Q00453

PATIENT
  Age: 33 Year
  Sex: Male

DRUGS (1)
  1. PREVACID [Suspect]
     Dosage: 30 MG, 1 IN 1 D, ORAL
     Route: 048

REACTIONS (2)
  - ACCIDENT [None]
  - JAW FRACTURE [None]
